FAERS Safety Report 18807172 (Version 1)
Quarter: 2021Q1

REPORT INFORMATION
  Report Type: Spontaneous
  Country: US (occurrence: US)
  Receive Date: 20210128
  Receipt Date: 20210128
  Transmission Date: 20210419
  Serious: No
  Sender: FDA-Public Use
  Company Number: US-ENDO PHARMACEUTICALS INC-2020-002921

PATIENT
  Sex: Female
  Weight: 70.76 kg

DRUGS (1)
  1. METHOTREXATE SODIUM. [Suspect]
     Active Substance: METHOTREXATE SODIUM
     Indication: PRODUCT USED FOR UNKNOWN INDICATION
     Dosage: 8 DF, WEEKLY (4 TABLETS IN AM AND 4 TABLETS IN THE PM)
     Route: 048

REACTIONS (1)
  - Drug ineffective [Unknown]
